FAERS Safety Report 4804576-1 (Version None)
Quarter: 2005Q4

REPORT INFORMATION
  Report Type: 
  Country: None (occurrence: None)
  Receive Date: 20051020
  Receipt Date: 20051011
  Transmission Date: 20060501
  Serious: Yes (Other)
  Sender: FDA-Public Use
  Company Number: JP-MERCK-0510USA06830

PATIENT
  Age: 77 Year
  Sex: Male

DRUGS (1)
  1. STROMECTOL [Suspect]
     Route: 048

REACTIONS (3)
  - HYPOAESTHESIA [None]
  - PARALYSIS [None]
  - SOMNOLENCE [None]
